FAERS Safety Report 12804642 (Version 1)
Quarter: 2016Q4

REPORT INFORMATION
  Report Type: Spontaneous
  Country: US (occurrence: US)
  Receive Date: 20161003
  Receipt Date: 20161003
  Transmission Date: 20170207
  Serious: No
  Sender: FDA-Public Use
  Company Number: US-BANPHARM-20154493

PATIENT
  Age: 73 Year
  Sex: Male
  Weight: 102.06 kg

DRUGS (3)
  1. LOPERAMIDE HCL CAPSULES, 2 MG [Suspect]
     Active Substance: LOPERAMIDE HYDROCHLORIDE
     Indication: DIARRHOEA
     Dosage: 1 DF, QD,
     Route: 048
     Dates: start: 20151201, end: 20151203
  2. ACID REFLUX MEDICATIONS [Concomitant]
  3. HIGH BLOOD PRESSURE MEDICATION [Concomitant]
     Active Substance: UNSPECIFIED INGREDIENT

REACTIONS (1)
  - Lip swelling [Recovered/Resolved]
